FAERS Safety Report 6470395-6 (Version None)
Quarter: 2009Q4

REPORT INFORMATION
  Report Type: 
  Country: None (occurrence: None)
  Receive Date: 20091203
  Receipt Date: 20091123
  Transmission Date: 20100525
  Serious: Yes (Other)
  Sender: FDA-Public Use
  Company Number: AT-PFIZER INC-2009295963

PATIENT
  Age: 86 Year
  Sex: Female

DRUGS (2)
  1. SORTIS [Suspect]
     Indication: HYPERLIPIDAEMIA
     Dosage: UNK
  2. ADALAT [Concomitant]
     Dosage: UNK

REACTIONS (2)
  - CATARACT [None]
  - DEMENTIA ALZHEIMER'S TYPE [None]
